FAERS Safety Report 4465002-8 (Version None)
Quarter: 2004Q4

REPORT INFORMATION
  Report Type: 
  Country: None (occurrence: None)
  Receive Date: 20041004
  Receipt Date: 20040604
  Transmission Date: 20050328
  Serious: No
  Sender: FDA-Public Use
  Company Number: S2004US06848

PATIENT
  Sex: Female

DRUGS (5)
  1. COREG [Suspect]
     Indication: BLOOD PRESSURE
     Dosage: 75MG PER DAY
     Route: 048
  2. CLONIDINE HCL [Suspect]
     Dosage: 6MG UNKNOWN
     Route: 065
  3. NORVASC [Suspect]
     Dosage: 10MG UNKNOWN
     Route: 065
  4. MICARDIS [Concomitant]
     Route: 065
  5. HCT [Concomitant]
     Route: 065

REACTIONS (1)
  - DRUG INEFFECTIVE [None]
